FAERS Safety Report 21324248 (Version 1)
Quarter: 2022Q3

REPORT INFORMATION
  Report Type: Spontaneous
  Country: US (occurrence: None)
  Receive Date: 20220911
  Receipt Date: 20220911
  Transmission Date: 20221026
  Serious: Yes (unspecified)
  Sender: FDA-Public Use
  Company Number: None

PATIENT
  Age: 32 Year
  Sex: Female

DRUGS (1)
  1. ICY HOT MEDICATED NO MESS APPLICATOR [Suspect]
     Active Substance: MENTHOL
     Indication: Analgesic therapy
     Dosage: FREQUENCY : AS NEEDED;?
     Route: 061
     Dates: start: 20220911, end: 20220911

REACTIONS (2)
  - Burns second degree [None]
  - Application site burn [None]

NARRATIVE: CASE EVENT DATE: 20220911
